FAERS Safety Report 11026487 (Version 1)
Quarter: 2015Q2

REPORT INFORMATION
  Report Type: Spontaneous
  Country: US (occurrence: US)
  Receive Date: 20150414
  Receipt Date: 20150414
  Transmission Date: 20150821
  Serious: Yes (Other)
  Sender: FDA-Public Use
  Company Number: US-BAUSCH-BL-2015-011427

PATIENT
  Age: 44 Year
  Sex: Female

DRUGS (2)
  1. ZYCLARA [Suspect]
     Active Substance: IMIQUIMOD
     Indication: SKIN LESION
     Route: 065
     Dates: start: 2014
  2. ZYCLARA [Suspect]
     Active Substance: IMIQUIMOD
     Indication: BASAL CELL CARCINOMA
     Dosage: AT BEDTIME
     Route: 065
     Dates: start: 2015, end: 2015

REACTIONS (3)
  - Fatigue [Recovering/Resolving]
  - Basal cell carcinoma [Unknown]
  - Treatment noncompliance [Unknown]
